FAERS Safety Report 15489002 (Version 1)
Quarter: 2018Q4

REPORT INFORMATION
  Report Type: Report from Study
  Country: IT (occurrence: IT)
  Receive Date: 20181011
  Receipt Date: 20181011
  Transmission Date: 20190205
  Serious: Yes (Hospitalization)
  Sender: FDA-Public Use
  Company Number: IT-BAYER-2018-184873

PATIENT
  Age: 57 Year
  Sex: Male

DRUGS (2)
  1. CARDIOASPIRIN 100 MG GASTRO-RESISTANT TABLETS [Suspect]
     Active Substance: ASPIRIN
     Dosage: 20 DF, ONCE
     Route: 048
     Dates: start: 20180913, end: 20180913
  2. COUMADIN [Suspect]
     Active Substance: WARFARIN SODIUM
     Dosage: 20 DF, UNK
     Route: 048
     Dates: start: 20180913, end: 20180913

REACTIONS (5)
  - Intentional overdose [Recovered/Resolved]
  - Drug abuse [Recovered/Resolved]
  - Sluggishness [Recovered/Resolved]
  - Asthenia [Recovered/Resolved]
  - Sopor [Recovered/Resolved]

NARRATIVE: CASE EVENT DATE: 20180913
